FAERS Safety Report 4397060-3 (Version None)
Quarter: 2004Q3

REPORT INFORMATION
  Report Type: 
  Country: None (occurrence: None)
  Receive Date: 20040714
  Receipt Date: 20040505
  Transmission Date: 20050211
  Serious: Yes (Hospitalization, Other)
  Sender: FDA-Public Use
  Company Number: PHEH2004US05040

PATIENT
  Age: 38 Year
  Sex: Female
  Weight: 72 kg

DRUGS (12)
  1. CLOZARIL [Suspect]
     Indication: MAJOR DEPRESSION
     Dosage: 200 MG/DAY
     Route: 048
     Dates: start: 20021101, end: 20040512
  2. SEROQUEL [Concomitant]
  3. REMERON [Concomitant]
  4. LO/OVRAL [Concomitant]
  5. VITAMIN C [Concomitant]
  6. ASPIRIN ENTERIC COATED K.P. [Concomitant]
  7. COLACE [Concomitant]
  8. ZANTAC [Concomitant]
  9. LACTULOSE [Concomitant]
  10. SYNTHROID [Concomitant]
  11. NIACIN [Concomitant]
  12. VITAMIN E [Concomitant]

REACTIONS (8)
  - ABDOMINAL PAIN UPPER [None]
  - ALANINE AMINOTRANSFERASE INCREASED [None]
  - ASPARTATE AMINOTRANSFERASE INCREASED [None]
  - CHOLELITHIASIS [None]
  - MENORRHAGIA [None]
  - NAUSEA [None]
  - UTERINE DILATION AND CURETTAGE [None]
  - VOMITING [None]
